FAERS Safety Report 18499842 (Version 1)
Quarter: 2020Q4

REPORT INFORMATION
  Report Type: Report from Study
  Country: None (occurrence: US)
  Receive Date: 20201112
  Receipt Date: 20201112
  Transmission Date: 20210114
  Serious: Yes (Other)
  Sender: FDA-Public Use
  Company Number: US-ABBVIE-20K-163-3645556-00

PATIENT
  Age: 24 Year
  Sex: Female

DRUGS (2)
  1. HUMIRA [Suspect]
     Active Substance: ADALIMUMAB
     Indication: HIDRADENITIS
  2. HUMIRA [Suspect]
     Active Substance: ADALIMUMAB
     Indication: CROHN^S DISEASE
     Dosage: CITRATE FREE
     Route: 058
     Dates: start: 2016

REACTIONS (7)
  - Product dispensing error [Unknown]
  - Inflammation [Unknown]
  - Injection site discomfort [Unknown]
  - Condition aggravated [Unknown]
  - Nervousness [Unknown]
  - Stress [Unknown]
  - Hidradenitis [Unknown]

NARRATIVE: CASE EVENT DATE: 20201109
